FAERS Safety Report 21189462 (Version 1)
Quarter: 2022Q3

REPORT INFORMATION
  Report Type: Spontaneous
  Country: CN (occurrence: None)
  Receive Date: 20220809
  Receipt Date: 20220809
  Transmission Date: 20221026
  Serious: Yes (Other)
  Sender: FDA-Public Use
  Company Number: CN-ROCHE-3155390

PATIENT
  Age: 41 Year
  Sex: Female

DRUGS (5)
  1. XELODA [Suspect]
     Active Substance: CAPECITABINE
     Indication: Breast cancer
     Dosage: D1-D14
     Route: 048
     Dates: start: 202106
  2. XELODA [Suspect]
     Active Substance: CAPECITABINE
     Dosage: NX, D1-D14
     Route: 048
     Dates: start: 202108
  3. VINORELBINE [Concomitant]
     Active Substance: VINORELBINE TARTRATE
     Indication: Breast cancer
     Dosage: D1, D8
     Route: 041
     Dates: start: 202108, end: 202109
  4. CISPLATIN [Concomitant]
     Active Substance: CISPLATIN
     Indication: Breast cancer
     Dosage: D2-4
     Route: 041
     Dates: start: 202109
  5. CATEQUENTINIB [Concomitant]
     Active Substance: CATEQUENTINIB
     Indication: Breast cancer
     Dosage: D1-14
     Route: 048
     Dates: start: 202201

REACTIONS (2)
  - Headache [Unknown]
  - Seizure [Unknown]

NARRATIVE: CASE EVENT DATE: 20220623
